FAERS Safety Report 18180482 (Version 2)
Quarter: 2020Q4

REPORT INFORMATION
  Report Type: Spontaneous
  Country: BR (occurrence: BR)
  Receive Date: 20200821
  Receipt Date: 20201011
  Transmission Date: 20210113
  Serious: Yes (Other)
  Sender: FDA-Public Use
  Company Number: NVSC2020BR228862

PATIENT

DRUGS (1)
  1. HEMITARTARATO DE ZOLPIDEM [Suspect]
     Active Substance: ZOLPIDEM TARTRATE
     Indication: INSOMNIA
     Dosage: UNK
     Route: 065

REACTIONS (7)
  - Irritability [Unknown]
  - Depression [Unknown]
  - General physical condition abnormal [Unknown]
  - Nightmare [Unknown]
  - Hypersensitivity [Unknown]
  - Drug ineffective [Unknown]
  - Insomnia [Unknown]
